FAERS Safety Report 8282010 (Version 3)
Quarter: 2013Q4

REPORT INFORMATION
  Report Type: Spontaneous
  Country: US (occurrence: US)
  Receive Date: 20111209
  Receipt Date: 20131001
  Transmission Date: 20140711
  Serious: No
  Sender: FDA-Public Use
  Company Number: US-PURDUE-USA-2011-0079152

PATIENT
  Age: 86 Year
  Sex: Female

DRUGS (1)
  1. BUTRANS [Suspect]
     Indication: PAIN
     Dosage: 10 MCG, Q1H
     Route: 062
     Dates: end: 20111017

REACTIONS (2)
  - Somnolence [Recovered/Resolved]
  - Fatigue [Recovered/Resolved]
